FAERS Safety Report 8153499-1 (Version None)
Quarter: 2012Q1

REPORT INFORMATION
  Report Type: 
  Country: None (occurrence: None)
  Receive Date: 20120221
  Receipt Date: 20120208
  Transmission Date: 20120608
  Serious: Yes (Other)
  Sender: FDA-Public Use
  Company Number: US-CELGENEUS-163-21660-12021064

PATIENT
  Sex: Female
  Weight: 59.02 kg

DRUGS (6)
  1. SYNTHROID [Concomitant]
     Route: 065
  2. WARFARIN [Concomitant]
     Route: 065
  3. FUROSEMIDE [Concomitant]
     Route: 065
  4. ZOLOFT [Concomitant]
     Route: 065
  5. METOPROLOL TARTRATE [Concomitant]
     Route: 065
  6. ABRAXANE [Suspect]
     Dosage: 130 MILLIGRAM
     Route: 041
     Dates: start: 20111031, end: 20120130

REACTIONS (2)
  - DRY EYE [None]
  - VISION BLURRED [None]
